FAERS Safety Report 16992852 (Version 1)
Quarter: 2019Q4

REPORT INFORMATION
  Report Type: Spontaneous
  Country: US (occurrence: US)
  Receive Date: 20191104
  Receipt Date: 20191104
  Transmission Date: 20200122
  Serious: Yes (Hospitalization)
  Sender: FDA-Public Use
  Company Number: None

PATIENT
  Age: 64 Year
  Sex: Male

DRUGS (11)
  1. BENAZEPRIL [Concomitant]
     Active Substance: BENAZEPRIL HYDROCHLORIDE
  2. METFORMIN [Concomitant]
     Active Substance: METFORMIN HYDROCHLORIDE
  3. PROCARDIA [Concomitant]
     Active Substance: NIFEDIPINE
  4. PROCHLORPER [Concomitant]
  5. VOTRIENT [Suspect]
     Active Substance: PAZOPANIB HYDROCHLORIDE
     Indication: RENAL CANCER
     Route: 048
     Dates: start: 20170308
  6. GLYBURIDE. [Concomitant]
     Active Substance: GLYBURIDE
  7. ROPINROLE [Concomitant]
     Active Substance: ROPINIROLE
  8. TEMAZEPAM. [Concomitant]
     Active Substance: TEMAZEPAM
  9. CARVEDILOL. [Concomitant]
     Active Substance: CARVEDILOL
  10. MAGNESIUM [Concomitant]
     Active Substance: MAGNESIUM
  11. ADVAIR HFA [Concomitant]
     Active Substance: FLUTICASONE PROPIONATE\SALMETEROL XINAFOATE

REACTIONS (1)
  - Hospitalisation [None]

NARRATIVE: CASE EVENT DATE: 20191025
